FAERS Safety Report 7085428-6 (Version None)
Quarter: 2010Q4

REPORT INFORMATION
  Report Type: 
  Country: None (occurrence: None)
  Receive Date: 20101105
  Receipt Date: 20101104
  Transmission Date: 20110411
  Serious: Yes (Other)
  Sender: FDA-Public Use
  Company Number: US-PFIZER INC-2010140950

PATIENT
  Sex: Female
  Weight: 59 kg

DRUGS (4)
  1. SOMAVERT [Suspect]
     Indication: PITUITARY TUMOUR
     Dosage: 40 MG, DAILY
     Route: 030
     Dates: start: 20100716, end: 20100716
  2. SOMAVERT [Suspect]
     Dosage: 20 MG, 1X/DAY
     Route: 058
     Dates: start: 20100717
  3. PROPRANOLOL [Concomitant]
     Dosage: 5 MG, UNK
  4. CYTOMEL [Concomitant]
     Dosage: 5 MG, 2X/DAY

REACTIONS (2)
  - HYPOTHYROIDISM [None]
  - INCORRECT ROUTE OF DRUG ADMINISTRATION [None]
